FAERS Safety Report 25526996 (Version 1)
Quarter: 2025Q3

REPORT INFORMATION
  Report Type: Report from Study
  Country: US (occurrence: US)
  Receive Date: 20250708
  Receipt Date: 20250708
  Transmission Date: 20251021
  Serious: Yes (Hospitalization, Other)
  Sender: GLAXOSMITHKLINE
  Company Number: US-GLAXOSMITHKLINE INC-US2025081871

PATIENT
  Sex: Female

DRUGS (1)
  1. BELIMUMAB [Suspect]
     Active Substance: BELIMUMAB
     Indication: Systemic lupus erythematosus

REACTIONS (9)
  - Systemic lupus erythematosus [Unknown]
  - Influenza [Unknown]
  - Sneezing [Unknown]
  - Mucosal discolouration [Unknown]
  - Secretion discharge [Unknown]
  - Fibromyalgia [Unknown]
  - Malaise [Unknown]
  - Irritable bowel syndrome [Unknown]
  - Wheezing [Unknown]
